FAERS Safety Report 23907509 (Version 1)
Quarter: 2024Q2

REPORT INFORMATION
  Report Type: Spontaneous
  Country: US (occurrence: None)
  Receive Date: 20240522
  Receipt Date: 20240522
  Transmission Date: 20240716
  Serious: Yes (Disabling)
  Sender: FDA-Public Use
  Company Number: None

PATIENT
  Age: 33 Year
  Sex: Female

DRUGS (1)
  1. PARAGARD T 380A [Suspect]
     Active Substance: COPPER

REACTIONS (8)
  - Dysmenorrhoea [None]
  - Suicidal ideation [None]
  - Depression [None]
  - Anger [None]
  - Social problem [None]
  - Psychiatric symptom [None]
  - Mood swings [None]
  - Frustration tolerance decreased [None]

NARRATIVE: CASE EVENT DATE: 20240301
